FAERS Safety Report 17489145 (Version 1)
Quarter: 2020Q1

REPORT INFORMATION
  Report Type: Spontaneous
  Country: US (occurrence: US)
  Receive Date: 20200303
  Receipt Date: 20200303
  Transmission Date: 20200409
  Serious: Yes (Life-Threatening, Hospitalization)
  Sender: FDA-Public Use
  Company Number: None

PATIENT
  Age: 88 Year
  Sex: Female
  Weight: 60.6 kg

DRUGS (10)
  1. LEVOTHYROXINE (SYNTHROID) 50 MCG [Concomitant]
  2. ATENOLOL (TENORMIN) 25 MG TABLET [Concomitant]
  3. ATORVASTATIN (LIPITOR) 20 MG [Concomitant]
  4. AMLODIPINE (NORVASC) TABLET 10 MG [Concomitant]
  5. QUETIAPINE (SEROQUEL) TABLET 25 MG [Concomitant]
  6. FAMOTIDINE (PEPCID) 40 MG/5 ML (8 MG/ML) SUSPENSION 20 MG [Concomitant]
  7. QUETIAPINE (SEROQUEL) SPLIT TABLET 12.5 MG [Concomitant]
  8. APIXABAN [Suspect]
     Active Substance: APIXABAN
     Indication: ATRIAL FIBRILLATION
     Route: 048
     Dates: start: 20181220, end: 20200225
  9. DEXAMETHASONE (DECADRON) INJECTION 6 MG [Concomitant]
  10. BISACODYL (DULCOLAX) SUPPOSITORY 10 MG [Concomitant]

REACTIONS (1)
  - Cerebral haemorrhage [None]

NARRATIVE: CASE EVENT DATE: 20200225
